FAERS Safety Report 6073000-6 (Version None)
Quarter: 2009Q1

REPORT INFORMATION
  Report Type: 
  Country: None (occurrence: None)
  Receive Date: 20090211
  Receipt Date: 20090205
  Transmission Date: 20090719
  Serious: Yes (Life-Threatening, Other)
  Sender: FDA-Public Use
  Company Number: GB-RANBAXY-2009RR-21600

PATIENT
  Age: 37 Year
  Sex: Male

DRUGS (3)
  1. FLUCLOXACILLIN [Suspect]
     Indication: ABSCESS
     Dosage: UNK
     Route: 048
     Dates: start: 20090108
  2. CLINDAMYCINE RANBAXY 300 MG CAPSULES [Suspect]
     Dosage: UNK
     Route: 048
     Dates: start: 20090108
  3. WARFARIN SODIUM [Suspect]
     Indication: DEEP VEIN THROMBOSIS
     Dosage: 4 MG, QD
     Route: 048
     Dates: start: 20080901, end: 20090116

REACTIONS (4)
  - COAGULATION TIME PROLONGED [None]
  - CONFUSIONAL STATE [None]
  - HAEMATURIA [None]
  - MELAENA [None]
